FAERS Safety Report 18449535 (Version 3)
Quarter: 2020Q4

REPORT INFORMATION
  Report Type: Spontaneous
  Country: US (occurrence: US)
  Receive Date: 20201030
  Receipt Date: 20201111
  Transmission Date: 20210114
  Serious: Yes (Death)
  Sender: FDA-Public Use
  Company Number: US-PFIZER INC-2020414372

PATIENT
  Age: 56 Year
  Sex: Male

DRUGS (8)
  1. HEPARIN SODIUM. [Suspect]
     Active Substance: HEPARIN SODIUM
     Dosage: 1,000 UNITS/H (UNFRACTIONATED)
     Route: 041
  2. CLOPIDOGREL [Concomitant]
     Active Substance: CLOPIDOGREL BISULFATE
     Dosage: UNK
  3. ASPIRIN [ACETYLSALICYLIC ACID] [Concomitant]
     Active Substance: ASPIRIN
     Dosage: UNK
  4. METFORMIN [Concomitant]
     Active Substance: METFORMIN HYDROCHLORIDE
     Indication: DIABETES MELLITUS
     Dosage: UNK
  5. AMLODIPINE [Concomitant]
     Active Substance: AMLODIPINE BESYLATE
     Dosage: UNK
  6. HEPARIN SODIUM. [Suspect]
     Active Substance: HEPARIN SODIUM
     Indication: ANTICOAGULANT THERAPY
     Dosage: 5000 IU, 3X/DAY (UNFRACTIONATED)
     Route: 058
  7. LEVETIRACETAM. [Concomitant]
     Active Substance: LEVETIRACETAM
     Indication: SEIZURE
     Dosage: UNK
  8. ATORVASTATIN [Concomitant]
     Active Substance: ATORVASTATIN
     Dosage: UNK

REACTIONS (1)
  - Activated partial thromboplastin time prolonged [Fatal]
